FAERS Safety Report 20816861 (Version 2)
Quarter: 2022Q2

REPORT INFORMATION
  Report Type: Spontaneous
  Country: US (occurrence: US)
  Receive Date: 20220512
  Receipt Date: 20220526
  Transmission Date: 20220720
  Serious: No
  Sender: FDA-Public Use
  Company Number: US-MACLEODS PHARMACEUTICALS US LTD-MAC2022035442

PATIENT
  Sex: Male

DRUGS (1)
  1. ESZOPICLONE [Suspect]
     Active Substance: ESZOPICLONE
     Indication: Insomnia
     Dosage: UNK (RXT433086, A0107AN, C433086)
     Route: 065

REACTIONS (3)
  - Suspected counterfeit product [Unknown]
  - Product substitution issue [Unknown]
  - Drug ineffective [Unknown]
